FAERS Safety Report 4404918-5 (Version None)
Quarter: 2004Q3

REPORT INFORMATION
  Report Type: 
  Country: None (occurrence: None)
  Receive Date: 20040716
  Receipt Date: 20040712
  Transmission Date: 20050211
  Serious: Yes (Other)
  Sender: FDA-Public Use
  Company Number: 207113

PATIENT
  Age: 70 Year
  Sex: Male
  Weight: 99.8 kg

DRUGS (1)
  1. XOLAIR [Suspect]
     Indication: ASTHMA
     Dosage: 150 MG, Q2W
     Dates: start: 20040609

REACTIONS (5)
  - CHEST PAIN [None]
  - CHILLS [None]
  - HEADACHE [None]
  - NAUSEA [None]
  - REFUSAL OF TREATMENT BY PATIENT [None]
